FAERS Safety Report 9603505 (Version 2)
Quarter: 2014Q4

REPORT INFORMATION
  Report Type: Spontaneous
  Country: ES (occurrence: ES)
  Receive Date: 20131007
  Receipt Date: 20141208
  Transmission Date: 20150529
  Serious: Yes (Hospitalization, Other)
  Sender: FDA-Public Use
  Company Number: PHHY2013ES108184

PATIENT
  Age: 63 Year
  Sex: Male

DRUGS (8)
  1. DEXAMETHASONE. [Suspect]
     Active Substance: DEXAMETHASONE
     Indication: INSULINOMA
     Dosage: 2 MG, BID
     Route: 065
  2. OCTREOTIDE, LONG ACTING [Suspect]
     Active Substance: OCTREOTIDE ACETATE
     Indication: INSULINOMA
     Dosage: 20 MG EVERY 28 DAYS
     Route: 065
  3. DIAZOXIDE [Suspect]
     Active Substance: DIAZOXIDE
     Dosage: 500 MG, THREE TIMES DAILY
  4. EVEROLIMUS [Suspect]
     Active Substance: EVEROLIMUS
     Dosage: 5 MG, QD
  5. DIAZOXIDE [Suspect]
     Active Substance: DIAZOXIDE
     Dosage: 100 MG, BID
  6. DEXAMETHASONE. [Suspect]
     Active Substance: DEXAMETHASONE
     Dosage: 1 MG, DAILY
  7. DIAZOXIDE [Suspect]
     Active Substance: DIAZOXIDE
     Indication: INSULINOMA
     Dosage: 200 MG, DAILY
     Route: 065
  8. EVEROLIMUS [Suspect]
     Active Substance: EVEROLIMUS
     Indication: INSULINOMA
     Dosage: 10 MG, QD
     Route: 065

REACTIONS (7)
  - Cushing^s syndrome [Unknown]
  - Pneumonia [Unknown]
  - Hypoglycaemia [Recovered/Resolved]
  - Oedema peripheral [Unknown]
  - Respiratory failure [Unknown]
  - Pleural effusion [Unknown]
  - Hyperglycaemia [Unknown]
